FAERS Safety Report 5340916-5 (Version None)
Quarter: 2007Q2

REPORT INFORMATION
  Report Type: 
  Country: None (occurrence: None)
  Receive Date: 20070531
  Receipt Date: 20070524
  Transmission Date: 20071010
  Serious: Yes (Hospitalization)
  Sender: FDA-Public Use
  Company Number: US-MERCK-0705USA04423

PATIENT
  Age: 78 Year
  Sex: Female

DRUGS (10)
  1. DECADRON [Suspect]
     Route: 048
     Dates: start: 20070322, end: 20070326
  2. REVLIMID [Suspect]
     Indication: MULTIPLE MYELOMA
     Route: 048
     Dates: start: 20070323, end: 20070402
  3. DURAGESIC-100 [Concomitant]
     Indication: PAIN
     Route: 061
     Dates: start: 20050101
  4. LASIX [Concomitant]
     Indication: OEDEMA
     Route: 048
  5. LOPRESSOR [Concomitant]
     Indication: HYPERTENSION
     Route: 048
     Dates: start: 20050101
  6. PROTONIX [Concomitant]
     Indication: GASTROOESOPHAGEAL REFLUX DISEASE
     Route: 048
  7. NORVASC [Concomitant]
     Indication: HYPERTENSION
     Route: 048
     Dates: start: 20050101
  8. POTASSIUM CHLORIDE [Concomitant]
     Indication: HYPOKALAEMIA
     Route: 048
  9. COUMADIN [Concomitant]
     Indication: DEEP VEIN THROMBOSIS
     Route: 065
  10. PERCOCET [Concomitant]
     Indication: PAIN
     Route: 065
     Dates: start: 20050101

REACTIONS (7)
  - ARRHYTHMIA [None]
  - DEHYDRATION [None]
  - DIARRHOEA [None]
  - GASTROENTERITIS VIRAL [None]
  - HYPOKALAEMIA [None]
  - NAUSEA [None]
  - VOMITING [None]
